FAERS Safety Report 10483872 (Version 1)
Quarter: 2014Q3

REPORT INFORMATION
  Report Type: Spontaneous
  Country: US (occurrence: None)
  Receive Date: 20140929
  Receipt Date: 20140929
  Transmission Date: 20150326
  Serious: Yes (Hospitalization)
  Sender: FDA-Public Use
  Company Number: None

PATIENT
  Age: 79 Year
  Sex: Male
  Weight: 99.3 kg

DRUGS (2)
  1. PREDNISONE. [Suspect]
     Active Substance: PREDNISONE
     Dates: start: 20140913
  2. ABIRATERONE ACETATE [Suspect]
     Active Substance: ABIRATERONE ACETATE
     Dates: start: 20140913

REACTIONS (5)
  - Fall [None]
  - Hip fracture [None]
  - Metastasis [None]
  - Joint injury [None]
  - Arthralgia [None]

NARRATIVE: CASE EVENT DATE: 20140914
